FAERS Safety Report 8070285-1 (Version None)
Quarter: 2012Q1

REPORT INFORMATION
  Report Type: 
  Country: None (occurrence: None)
  Receive Date: 20120125
  Receipt Date: 20120124
  Transmission Date: 20120608
  Serious: Yes (Other)
  Sender: FDA-Public Use
  Company Number: US-ROCHE-1006939

PATIENT
  Sex: Male
  Weight: 95.34 kg

DRUGS (6)
  1. ACCUTANE [Suspect]
     Dates: start: 19970301, end: 19970701
  2. TETRACYCLINE [Concomitant]
     Dates: start: 19960101
  3. ACCUTANE [Suspect]
     Indication: PRODUCT USED FOR UNKNOWN INDICATION
     Dates: start: 19960701, end: 19961101
  4. ACCUTANE [Suspect]
     Dates: start: 19990201, end: 19990501
  5. MINOCYCLINE HCL [Concomitant]
     Dates: start: 19960101
  6. ACCUTANE [Suspect]
     Dates: start: 19980401, end: 19980901

REACTIONS (6)
  - EMOTIONAL DISTRESS [None]
  - COLITIS ULCERATIVE [None]
  - DEPRESSION [None]
  - INFLAMMATORY BOWEL DISEASE [None]
  - ANXIETY [None]
  - ANAEMIA [None]
